FAERS Safety Report 9626882 (Version 1)
Quarter: 2013Q4

REPORT INFORMATION
  Report Type: Spontaneous
  Country: NO (occurrence: NO)
  Receive Date: 20131016
  Receipt Date: 20131016
  Transmission Date: 20140711
  Serious: Yes (Hospitalization)
  Sender: FDA-Public Use
  Company Number: NO-BRISTOL-MYERS SQUIBB COMPANY-19514751

PATIENT
  Age: 41 Year
  Sex: Female

DRUGS (8)
  1. TAXOL [Suspect]
     Indication: BREAST CANCER
     Dates: start: 20130204
  2. TRASTUZUMAB [Suspect]
     Indication: BREAST CANCER
     Dosage: LAST DOSE:17MAR13.?TEST DOSE PRIOR TO SAE WAS 19/AUG/2013
     Route: 058
     Dates: start: 20130204
  3. TAMOXIFEN CITRATE [Suspect]
     Indication: BREAST CANCER
     Dates: start: 20130517
  4. IBUPROFEN [Concomitant]
     Dates: start: 2007
  5. LAXOBERAL [Concomitant]
     Dates: start: 20130325
  6. SOMAC [Concomitant]
     Dates: start: 20130227, end: 20130802
  7. PARACET [Concomitant]
     Dates: start: 20130417
  8. OXINORM [Concomitant]
     Dates: start: 20130624

REACTIONS (1)
  - Dyspnoea [Recovered/Resolved]
